FAERS Safety Report 4945209-3 (Version None)
Quarter: 2006Q1

REPORT INFORMATION
  Report Type: 
  Country: None (occurrence: None)
  Receive Date: 20060316
  Receipt Date: 20060307
  Transmission Date: 20060701
  Serious: Yes (Hospitalization)
  Sender: FDA-Public Use
  Company Number: US-AVENTIS-200612324US

PATIENT
  Sex: Female

DRUGS (1)
  1. LOVENOX [Suspect]
     Indication: HIGH RISK PREGNANCY
     Dosage: DOSE: UNK
     Route: 058
     Dates: start: 20031201, end: 20040701

REACTIONS (5)
  - AMNIOTIC FLUID VOLUME DECREASED [None]
  - CAESAREAN SECTION [None]
  - DRUG EXPOSURE DURING PREGNANCY [None]
  - PLACENTAL INFARCTION [None]
  - THROMBOSIS [None]
